FAERS Safety Report 24757506 (Version 1)
Quarter: 2024Q4

REPORT INFORMATION
  Report Type: Spontaneous
  Country: US (occurrence: US)
  Receive Date: 20241220
  Receipt Date: 20241220
  Transmission Date: 20250114
  Serious: Yes (Hospitalization)
  Sender: STRIDES
  Company Number: US-STRIDES ARCOLAB LIMITED-2024SP016737

PATIENT
  Age: 25 Year
  Sex: Male

DRUGS (3)
  1. CABERGOLINE [Suspect]
     Active Substance: CABERGOLINE
     Indication: Pituitary tumour benign
     Dosage: 0.5 MILLIGRAM, ONCE A WEEK
     Route: 065
  2. CABERGOLINE [Suspect]
     Active Substance: CABERGOLINE
     Indication: Prolactin-producing pituitary tumour
  3. CABERGOLINE [Suspect]
     Active Substance: CABERGOLINE
     Indication: Erectile dysfunction

REACTIONS (3)
  - Pituitary-dependent Cushing^s syndrome [Recovered/Resolved]
  - Symptom masked [Recovered/Resolved]
  - Off label use [Unknown]
